FAERS Safety Report 7648772-7 (Version None)
Quarter: 2011Q3

REPORT INFORMATION
  Report Type: 
  Country: None (occurrence: None)
  Receive Date: 20110801
  Receipt Date: 20110726
  Transmission Date: 20111222
  Serious: Yes (Death, Other)
  Sender: FDA-Public Use
  Company Number: PHHY2011US43935

PATIENT
  Sex: Male

DRUGS (1)
  1. GLEEVEC [Suspect]
     Indication: CHRONIC MYELOID LEUKAEMIA
     Dosage: 400 MG, DAILY
     Route: 048
     Dates: start: 20071005

REACTIONS (23)
  - HYPERNATRAEMIA [None]
  - RESPIRATORY ARREST [None]
  - HYPOTENSION [None]
  - THROMBOCYTOPENIA [None]
  - RESPIRATORY FAILURE [None]
  - SEPSIS [None]
  - HYPOKALAEMIA [None]
  - PNEUMOPERITONEUM [None]
  - PULMONARY OEDEMA [None]
  - METABOLIC ACIDOSIS [None]
  - HYPERLIPIDAEMIA [None]
  - RENAL FAILURE CHRONIC [None]
  - ANAEMIA [None]
  - HYDROCEPHALUS [None]
  - HYPOMAGNESAEMIA [None]
  - DIARRHOEA [None]
  - STATUS EPILEPTICUS [None]
  - MENINGIOMA [None]
  - ATRIAL FIBRILLATION [None]
  - HYPOXIC-ISCHAEMIC ENCEPHALOPATHY [None]
  - GLUCOSE TOLERANCE IMPAIRED [None]
  - MALNUTRITION [None]
  - FLATULENCE [None]
